FAERS Safety Report 23698256 (Version 2)
Quarter: 2024Q2

REPORT INFORMATION
  Report Type: Spontaneous
  Country: US (occurrence: US)
  Receive Date: 20240402
  Receipt Date: 20240402
  Transmission Date: 20240715
  Serious: No
  Sender: FDA-Public Use
  Company Number: US-THEA-2023001686

PATIENT
  Age: 84 Year
  Sex: Female

DRUGS (1)
  1. ZIOPTAN [Suspect]
     Active Substance: TAFLUPROST
     Indication: Glaucoma
     Dosage: BOTH EYES
     Route: 047
     Dates: start: 20230804, end: 20230818

REACTIONS (4)
  - Eye pruritus [Not Recovered/Not Resolved]
  - Eye swelling [Recovered/Resolved]
  - Lacrimation increased [Recovered/Resolved]
  - Ephelides [Recovered/Resolved]

NARRATIVE: CASE EVENT DATE: 20230804
